FAERS Safety Report 25116541 (Version 2)
Quarter: 2025Q2

REPORT INFORMATION
  Report Type: Spontaneous
  Country: CA (occurrence: CA)
  Receive Date: 20250325
  Receipt Date: 20250505
  Transmission Date: 20250717
  Serious: Yes (Hospitalization)
  Sender: CSL BEHRING
  Company Number: CA-BEH-2025200010

PATIENT
  Age: 77 Year
  Sex: Male
  Weight: 72.57 kg

DRUGS (8)
  1. PRIVIGEN [Suspect]
     Active Substance: HUMAN IMMUNOGLOBULIN G
     Indication: Immune thrombocytopenia
     Route: 042
     Dates: start: 20250314, end: 20250314
  2. PRIVIGEN [Suspect]
     Active Substance: HUMAN IMMUNOGLOBULIN G
     Route: 042
     Dates: start: 20250314, end: 20250314
  3. PRIVIGEN [Suspect]
     Active Substance: HUMAN IMMUNOGLOBULIN G
     Route: 042
     Dates: start: 20250314, end: 20250314
  4. PRIVIGEN [Suspect]
     Active Substance: HUMAN IMMUNOGLOBULIN G
     Route: 042
     Dates: start: 20250314
  5. LORAZEPAM [Concomitant]
     Active Substance: LORAZEPAM
     Route: 048
     Dates: start: 20250312
  6. HYDROMORPHONE [Concomitant]
     Active Substance: HYDROMORPHONE
     Route: 048
     Dates: start: 20250308
  7. OXAZEPAM [Concomitant]
     Active Substance: OXAZEPAM
     Route: 048
     Dates: start: 20250311
  8. AMPICILLIN [Concomitant]
     Active Substance: AMPICILLIN
     Route: 042
     Dates: start: 20250310

REACTIONS (1)
  - Transfusion-related circulatory overload [Recovering/Resolving]

NARRATIVE: CASE EVENT DATE: 20250314
